FAERS Safety Report 4428570-8 (Version None)
Quarter: 2004Q3

REPORT INFORMATION
  Report Type: 
  Country: None (occurrence: None)
  Receive Date: 20040818
  Receipt Date: 20040405
  Transmission Date: 20050211
  Serious: Yes (Death)
  Sender: FDA-Public Use
  Company Number: IT-BRISTOL-MYERS SQUIBB COMPANY-12556585

PATIENT
  Age: 78 Year
  Sex: Female
  Weight: 63 kg

DRUGS (4)
  1. CYCLOPHOSPHAMIDE [Suspect]
     Indication: LYMPHOMA
     Dosage: DAYS 2-6.  START DATE:  09-OCT-2000.  CYCLE 1 TOTAL DOSE: 1500MG
     Route: 048
     Dates: start: 20001030, end: 20001030
  2. ETOPOSIDE [Suspect]
     Indication: LYMPHOMA
     Dosage: DAYS 2, 4 AND 6.  START DATE:  09-OCT-2000.  CYCLE 1 TOTAL DOSE:  300 MG
     Route: 048
     Dates: start: 20001030, end: 20001030
  3. IDARUBICIN HCL [Suspect]
     Indication: LYMPHOMA
     Dosage: DAYS 1, 3 AND 5.  START DATE:  09-OCT-2000.  CYCLE 1 TOTAL DOSE:  39 MG
     Route: 048
     Dates: start: 20001030, end: 20001030
  4. PREDNISONE [Suspect]
     Indication: LYMPHOMA
     Dosage: DAYS 1-5.  START DATE:  09-OCT-2000.  CYCLE 1 TOTAL DOSE:  250 MG
     Route: 048
     Dates: start: 20001030, end: 20001030

REACTIONS (1)
  - VENTRICULAR FIBRILLATION [None]
